FAERS Safety Report 24693881 (Version 1)
Quarter: 2024Q4

REPORT INFORMATION
  Report Type: Spontaneous
  Country: US (occurrence: US)
  Receive Date: 20241204
  Receipt Date: 20241204
  Transmission Date: 20250115
  Serious: No
  Sender: AUROBINDO
  Company Number: US-AUROBINDO-AUR-APL-2023-081293

PATIENT
  Sex: Female
  Weight: 50 kg

DRUGS (1)
  1. GUAIFENESIN [Suspect]
     Active Substance: GUAIFENESIN
     Indication: Drug therapy
     Dosage: UNK
     Route: 065

REACTIONS (3)
  - Product physical issue [Unknown]
  - Product use complaint [Unknown]
  - Wrong technique in product usage process [Unknown]
